FAERS Safety Report 15122459 (Version 3)
Quarter: 2018Q4

REPORT INFORMATION
  Report Type: Spontaneous
  Country: US (occurrence: US)
  Receive Date: 20180709
  Receipt Date: 20181226
  Transmission Date: 20190204
  Serious: Yes (Hospitalization, Other)
  Sender: FDA-Public Use
  Company Number: US-PFIZER INC-2018271253

PATIENT
  Age: 64 Year
  Sex: Female
  Weight: 67.13 kg

DRUGS (9)
  1. CHANTIX [Suspect]
     Active Substance: VARENICLINE TARTRATE
     Dosage: 10 MG , 2X/DAY
     Route: 048
     Dates: start: 201711, end: 201805
  2. LISINOPRIL. [Concomitant]
     Active Substance: LISINOPRIL
     Dosage: 5 MG, 1X/DAY[IN MORNING]
     Dates: start: 2010
  3. FUROSEMIDE. [Concomitant]
     Active Substance: FUROSEMIDE
     Dosage: 20 MG, UNK
     Dates: start: 2005
  4. CHANTIX [Suspect]
     Active Substance: VARENICLINE TARTRATE
     Indication: SMOKING CESSATION THERAPY
     Dosage: 1 MG, 2X/DAY
     Route: 048
     Dates: end: 2018
  5. ZOLOFT [Concomitant]
     Active Substance: SERTRALINE HYDROCHLORIDE
     Dosage: 100 MG, UNK
     Dates: start: 1997
  6. TRAZODONE [Concomitant]
     Active Substance: TRAZODONE HYDROCHLORIDE
     Dosage: 150 MG, 1X/DAY[AT NIGHT]
     Dates: start: 2012
  7. LIPITOR [Concomitant]
     Active Substance: ATORVASTATIN CALCIUM
     Dosage: 40 MG, 1X/DAY[AT NIGHT]
     Dates: start: 2016
  8. BABY ASPIRIN [Concomitant]
     Active Substance: ASPIRIN
     Dosage: 1 DF, UNK
     Dates: start: 2005
  9. LORAZEPAM. [Concomitant]
     Active Substance: LORAZEPAM
     Dosage: 1 MG, 3X/DAY
     Dates: start: 2010

REACTIONS (15)
  - Nerve compression [Not Recovered/Not Resolved]
  - Stress [Not Recovered/Not Resolved]
  - Intermittent claudication [Recovered/Resolved]
  - Contusion [Recovering/Resolving]
  - Loss of personal independence in daily activities [Recovered/Resolved]
  - Peripheral arterial occlusive disease [Recovered/Resolved]
  - Gait disturbance [Recovered/Resolved]
  - Coagulopathy [Recovered/Resolved]
  - Wrong technique in product usage process [Unknown]
  - Musculoskeletal discomfort [Not Recovered/Not Resolved]
  - Limb discomfort [Not Recovered/Not Resolved]
  - Intentional product misuse [Unknown]
  - Angiopathy [Recovered/Resolved]
  - Limb injury [Recovered/Resolved]
  - Hair growth abnormal [Recovered/Resolved]

NARRATIVE: CASE EVENT DATE: 2018
